FAERS Safety Report 23935583 (Version 3)
Quarter: 2024Q3

REPORT INFORMATION
  Report Type: Report from Study
  Country: HU (occurrence: HU)
  Receive Date: 20240604
  Receipt Date: 20240704
  Transmission Date: 20241016
  Serious: Yes (Death, Life-Threatening, Hospitalization, Other)
  Sender: ABBVIE
  Company Number: HU-ABBVIE-5782613

PATIENT
  Age: 74 Year
  Sex: Female

DRUGS (3)
  1. CARBIDOPA\LEVODOPA [Suspect]
     Active Substance: CARBIDOPA\LEVODOPA
     Indication: Parkinson^s disease
     Dosage: MORNING DOSE: 6.4 ML; CONTINUOUS DOSE: 2.9 ML/HOUR; EXTRA DOSE: 1.0 ML
     Route: 050
     Dates: start: 20180113
  2. CARBIDOPA\LEVODOPA [Suspect]
     Active Substance: CARBIDOPA\LEVODOPA
     Dosage: MORNING DOSE: 6.4 ML; CONTINUOUS DOSE: 2.9 ML/HOUR; EXTRA DOSE: 1.0 ML
     Route: 050
  3. CARBIDOPA\LEVODOPA [Suspect]
     Active Substance: CARBIDOPA\LEVODOPA
     Dosage: MORNING DOSE: 6.4 ML; CONTINUOUS DOSE: 2.9 ML/HOURS; EXTRA DOSE: 1.0 ML
     Route: 050

REACTIONS (13)
  - Death [Fatal]
  - Confusional state [Recovered/Resolved]
  - Cardiac failure [Unknown]
  - Pneumonia [Unknown]
  - Dehydration [Recovered/Resolved]
  - Respiratory arrest [Recovered/Resolved]
  - Stoma site discharge [Not Recovered/Not Resolved]
  - Staphylococcal infection [Unknown]
  - Pathogen resistance [Unknown]
  - Atrial fibrillation [Recovered/Resolved]
  - Femoral neck fracture [Recovered/Resolved]
  - Loss of consciousness [Not Recovered/Not Resolved]
  - Knee arthroplasty [Unknown]

NARRATIVE: CASE EVENT DATE: 20181127
